FAERS Safety Report 4489598-5 (Version None)
Quarter: 2004Q4

REPORT INFORMATION
  Report Type: 
  Country: None (occurrence: None)
  Receive Date: 20041101
  Receipt Date: 20041028
  Transmission Date: 20050328
  Serious: Yes (Death)
  Sender: FDA-Public Use
  Company Number: US-BRISTOL-MYERS SQUIBB COMPANY-12748265

PATIENT
  Age: 30 Year
  Sex: Male

DRUGS (4)
  1. GLUCOPHAGE [Suspect]
     Route: 048
  2. ACCUPRIL [Concomitant]
  3. ALBUTEROL [Concomitant]
  4. ADVAIR [Concomitant]

REACTIONS (1)
  - DEATH [None]
